FAERS Safety Report 14481511 (Version 5)
Quarter: 2018Q1

REPORT INFORMATION
  Report Type: Spontaneous
  Country: SI (occurrence: SI)
  Receive Date: 20180202
  Receipt Date: 20180320
  Transmission Date: 20180509
  Serious: No
  Sender: FDA-Public Use
  Company Number: SI-PFIZER INC-2018044671

PATIENT
  Age: 65 Year
  Sex: Male
  Weight: 170 kg

DRUGS (12)
  1. PERINDOPRIL AMLODIPIN [Concomitant]
     Active Substance: AMLODIPINE\PERINDOPRIL
     Dosage: UNK
     Route: 065
  2. ACENOCUMAROL [Concomitant]
     Active Substance: ACENOCOUMAROL
     Dosage: UNK
     Route: 065
  3. DICLOFENAC [Concomitant]
     Active Substance: DICLOFENAC
     Indication: BACK PAIN
     Dosage: UNK UNK, AS NEEDED
     Route: 042
  4. OMEPRAZOLE. [Concomitant]
     Active Substance: OMEPRAZOLE
  5. ROSUVASTATIN. [Concomitant]
     Active Substance: ROSUVASTATIN
     Dosage: UNK
  6. MORPHINE [Suspect]
     Active Substance: MORPHINE
     Dosage: 10 MG, 2X/DAY
  7. PARACETAMOL [Concomitant]
     Active Substance: ACETAMINOPHEN
     Indication: BACK PAIN
     Dosage: 500 MG, 3X/DAY
  8. ORPHENADRINE [Concomitant]
     Active Substance: ORPHENADRINE
     Indication: BACK PAIN
     Dosage: UNK UNK, AS NEEDED
  9. METAMIZOL [Concomitant]
     Active Substance: METAMIZOLE SODIUM
     Indication: BACK PAIN
     Dosage: 500 MG, 2X/DAY
  10. PREGABALIN. [Suspect]
     Active Substance: PREGABALIN
     Indication: POLYNEUROPATHY
     Dosage: 25 MG, 2X/DAY
  11. METILDIGOXIN [Concomitant]
     Active Substance: METILDIGOXIN
     Dosage: UNK
     Route: 065
  12. CARVEDILOL. [Concomitant]
     Active Substance: CARVEDILOL
     Dosage: UNK
     Route: 065

REACTIONS (4)
  - Restlessness [Recovered/Resolved]
  - Hallucination [Recovered/Resolved]
  - Paranoia [Recovered/Resolved]
  - Confusional state [Recovered/Resolved]
